FAERS Safety Report 4489937-5 (Version None)
Quarter: 2004Q4

REPORT INFORMATION
  Report Type: 
  Country: None (occurrence: None)
  Receive Date: 20041101
  Receipt Date: 20040921
  Transmission Date: 20050328
  Serious: Yes (Hospitalization)
  Sender: FDA-Public Use
  Company Number: US-GLAXOSMITHKLINE-A0526686A

PATIENT
  Age: 23 Year
  Sex: Male

DRUGS (2)
  1. LAMICTAL [Suspect]
     Indication: ILL-DEFINED DISORDER
     Route: 048
     Dates: start: 20040402
  2. DEPAKOTE [Concomitant]

REACTIONS (4)
  - BLINDNESS [None]
  - DIPLOPIA [None]
  - OPTIC NEURITIS [None]
  - VISUAL ACUITY REDUCED [None]
